FAERS Safety Report 8577638 (Version 3)
Quarter: 2012Q4

REPORT INFORMATION
  Report Type: 
  Country: JP (occurrence: JP)
  Receive Date: 20120524
  Receipt Date: 20121106
  Transmission Date: 20130627
  Serious: Yes (Life-Threatening, Hospitalization)
  Sender: FDA-Public Use
  Company Number: JP-JNJFOC-20120512641

PATIENT
  Age: 84 Year
  Sex: Female
  Weight: 41 kg

DRUGS (10)
  1. REMICADE [Suspect]
     Indication: RHEUMATOID ARTHRITIS
     Route: 042
     Dates: start: 20120131
  2. REMICADE [Suspect]
     Indication: RHEUMATOID ARTHRITIS
     Route: 042
     Dates: start: 20120410
  3. RHEUMATREX [Suspect]
     Indication: RHEUMATOID ARTHRITIS
     Dosage: 10 years before
     Route: 048
  4. BONALON [Suspect]
     Indication: OSTEOPOROSIS
     Route: 048
  5. BONALON [Suspect]
     Indication: OSTEOARTHRITIS
     Route: 048
  6. TAKEPRON [Suspect]
     Indication: GASTRITIS
     Dosage: dose for one treatment: 15mg
     Route: 048
  7. MUCOSTA [Suspect]
     Indication: GASTRITIS
     Dosage: daily dose 200 mg and dose for treatment 100 mg
     Route: 048
  8. TALION [Concomitant]
     Indication: URTICARIA
     Dosage: daily dose 20 mg and dose for treatment was 10 mg
     Route: 048
  9. FOLIAMIN [Concomitant]
     Indication: RHEUMATOID ARTHRITIS
     Route: 048
  10. ADALIMUMAB [Concomitant]
     Indication: RHEUMATOID ARTHRITIS
     Route: 048
     Dates: start: 20110423

REACTIONS (3)
  - Pulmonary alveolar haemorrhage [Recovered/Resolved]
  - Respiratory failure [Recovered/Resolved]
  - Anaemia [Recovered/Resolved]
